FAERS Safety Report 8857505 (Version 1)
Quarter: 2012Q4

REPORT INFORMATION
  Report Type: 
  Country: US (occurrence: US)
  Receive Date: 20121024
  Receipt Date: 20121024
  Transmission Date: 20130627
  Serious: Yes (Life-Threatening, Hospitalization, Disabling, Other)
  Sender: FDA-Public Use
  Company Number: US-009507513-1210USA007107

PATIENT

DRUGS (1)
  1. FOSAMAX [Suspect]
     Indication: PRODUCT USED FOR UNKNOWN INDICATION
     Dosage: UNK
     Route: 048
     Dates: start: 2001, end: 200710

REACTIONS (5)
  - Femur fracture [Unknown]
  - Femur fracture [Unknown]
  - Stress fracture [Unknown]
  - Intramedullary rod insertion [Unknown]
  - Stress fracture [Unknown]
